FAERS Safety Report 14418466 (Version 1)
Quarter: 2018Q1

REPORT INFORMATION
  Report Type: Spontaneous
  Country: US (occurrence: US)
  Receive Date: 20180122
  Receipt Date: 20180122
  Transmission Date: 20180509
  Serious: No
  Sender: FDA-Public Use
  Company Number: US-INTERCEPT-PMOCA2017001506

PATIENT

DRUGS (10)
  1. AMLODIPINE [Concomitant]
     Active Substance: AMLODIPINE BESYLATE
  2. CELEBREX [Concomitant]
     Active Substance: CELECOXIB
  3. GABAPENTIN. [Concomitant]
     Active Substance: GABAPENTIN
  4. BIOTIN [Concomitant]
     Active Substance: BIOTIN
  5. HYDROXYCHLOROQUINE [Concomitant]
     Active Substance: HYDROXYCHLOROQUINE
  6. TURMERIC [Concomitant]
     Active Substance: HERBALS\TURMERIC
  7. OCALIVA [Suspect]
     Active Substance: OBETICHOLIC ACID
     Indication: PRIMARY BILIARY CHOLANGITIS
     Dosage: 5 MG, QD
     Route: 048
     Dates: start: 20170615
  8. AZATHIOPRINE. [Concomitant]
     Active Substance: AZATHIOPRINE
  9. VITAMIN D3 [Concomitant]
     Active Substance: CHOLECALCIFEROL
  10. OMEPRAZOLE. [Concomitant]
     Active Substance: OMEPRAZOLE

REACTIONS (3)
  - Pruritus [Not Recovered/Not Resolved]
  - Fatigue [Unknown]
  - Spinal operation [Unknown]

NARRATIVE: CASE EVENT DATE: 20171017
